FAERS Safety Report 6719965-8 (Version None)
Quarter: 2010Q2

REPORT INFORMATION
  Report Type: 
  Country: None (occurrence: None)
  Receive Date: 20100511
  Receipt Date: 20100507
  Transmission Date: 20101027
  Serious: Yes (Death)
  Sender: FDA-Public Use
  Company Number: US-GILEAD-2010-0028722

PATIENT
  Sex: Female
  Weight: 158.9 kg

DRUGS (13)
  1. LETAIRIS [Suspect]
     Indication: PULMONARY ARTERIAL HYPERTENSION
     Route: 048
     Dates: start: 20100409, end: 20100419
  2. ASPIRIN [Concomitant]
  3. PLAVIX [Concomitant]
  4. LASIX [Concomitant]
  5. ENALAPRIL MALEATE [Concomitant]
  6. METOPROLOL TARTRATE [Concomitant]
  7. CLONIDINE [Concomitant]
  8. HYDRALAZINE HCL [Concomitant]
  9. VERAPAMIL ER [Concomitant]
  10. NITROGLYCERIN [Concomitant]
  11. AMIODARONE [Concomitant]
  12. SIMVASTATIN [Concomitant]
  13. PENTOXIFYLLINE [Concomitant]

REACTIONS (1)
  - CARDIO-RESPIRATORY ARREST [None]
